FAERS Safety Report 7704417-9 (Version None)
Quarter: 2011Q3

REPORT INFORMATION
  Report Type: 
  Country: None (occurrence: None)
  Receive Date: 20110823
  Receipt Date: 20110811
  Transmission Date: 20111222
  Serious: Yes (Other)
  Sender: FDA-Public Use
  Company Number: DE-ALEXION PHARMACEUTICALS INC.-A201101042

PATIENT
  Sex: Male

DRUGS (18)
  1. SOLIRIS [Suspect]
     Indication: HAEMOLYTIC URAEMIC SYNDROME
     Dosage: 900 MG, QW
     Route: 042
     Dates: start: 20110609
  2. MEROPENEM [Concomitant]
     Dosage: THREE TIMES
     Route: 042
     Dates: start: 20110623, end: 20110629
  3. METOPROLOL [Concomitant]
     Indication: BLOOD PRESSURE MANAGEMENT
     Dosage: 25 MG, TWO TIMES
     Route: 048
  4. DUTASTERIDE [Concomitant]
     Dosage: 0.5 MG, UNK
     Route: 048
  5. CODEINE SULFATE [Concomitant]
     Dosage: 20 DROPS PRN
     Route: 048
  6. NOREPINEPHRINE BITARTRATE [Concomitant]
     Indication: BLOOD PRESSURE MANAGEMENT
     Dosage: UNK
     Route: 042
     Dates: end: 20110616
  7. MEROPENEM [Concomitant]
     Indication: ANTIBIOTIC THERAPY
     Dosage: THREE TIMES
     Route: 042
     Dates: start: 20110604, end: 20110615
  8. FUROSEMIDE [Concomitant]
     Dosage: 20 MG, THREE TIMES
     Route: 048
  9. LORAZEPAM [Concomitant]
     Dosage: 0.25 MG, FOUR TIMES
     Route: 048
  10. SOLIRIS [Suspect]
     Dosage: 1200 MG, UNK
     Route: 042
     Dates: start: 20110708
  11. LEVETIRACETAM [Concomitant]
     Indication: CONVULSION
     Dosage: 1.5 G, TWO TIMES
     Route: 042
     Dates: start: 20110603
  12. LINEZOLID [Concomitant]
     Indication: ANTIBIOTIC THERAPY
     Dosage: UNK
     Route: 042
     Dates: start: 20110611, end: 20110619
  13. PANTOPRAZOLE [Concomitant]
     Dosage: 40 MG, UNK
     Route: 042
  14. KONAKION [Concomitant]
     Dosage: 10 MG, UNK
     Route: 042
  15. DOXAZOSIN MESYLATE [Concomitant]
     Indication: BLOOD PRESSURE MANAGEMENT
     Dosage: 4 MG, UNK
     Route: 048
  16. ACETYLCYSTEINE [Concomitant]
     Dosage: 600 MG, UNK
     Route: 048
  17. HYDROCHLOROTHIAZIDE [Concomitant]
     Dosage: 25 MG, UNK
     Route: 048
  18. HEPARIN [Concomitant]
     Dosage: 200 I.E., UNK
     Route: 042

REACTIONS (3)
  - PULMONARY OEDEMA [None]
  - PYREXIA [None]
  - LUNG INFILTRATION [None]
